FAERS Safety Report 10502285 (Version 13)
Quarter: 2016Q4

REPORT INFORMATION
  Report Type: Report from Study
  Country: DE (occurrence: DE)
  Receive Date: 20141007
  Receipt Date: 20161020
  Transmission Date: 20170206
  Serious: Yes (Life-Threatening, Hospitalization, Other)
  Sender: FDA-Public Use
  Company Number: PHHY2014DE126889

PATIENT
  Age: 77 Year
  Sex: Female
  Weight: 64 kg

DRUGS (11)
  1. AFINITOR [Suspect]
     Active Substance: EVEROLIMUS
     Dosage: 10 MG, QD
     Route: 048
     Dates: start: 20140620, end: 20140710
  2. AFINITOR [Suspect]
     Active Substance: EVEROLIMUS
     Indication: BREAST CANCER METASTATIC
     Dosage: 5 MG, QD
     Route: 048
     Dates: start: 20140424, end: 20140619
  3. BROMAZEPAM [Concomitant]
     Active Substance: BROMAZEPAM
     Indication: PRODUCT USED FOR UNKNOWN INDICATION
     Dosage: 6 MG, AT NIGHT (1*DAILY)
     Route: 065
     Dates: start: 201407
  4. LEVOTHYROXINE. [Concomitant]
     Active Substance: LEVOTHYROXINE
     Indication: HYPOTHYROIDISM
     Dosage: 75 UG, QD (1-0-0)
     Route: 048
     Dates: start: 2003
  5. SIMVASTATIN. [Concomitant]
     Active Substance: SIMVASTATIN
     Dosage: 10 MG, QD (0-0-1)
     Route: 065
     Dates: start: 201304
  6. ACETYLSALICYLIC ACID [Concomitant]
     Active Substance: ASPIRIN
     Indication: PRODUCT USED FOR UNKNOWN INDICATION
     Dosage: 100 MG, QD (1-0-0)
     Route: 065
     Dates: start: 201304
  7. NOVALGIN [Concomitant]
     Active Substance: METAMIZOLE SODIUM
     Indication: PRODUCT USED FOR UNKNOWN INDICATION
     Dosage: UNK UNK, PRN
     Route: 065
     Dates: start: 20130811
  8. EXEMESTANE. [Suspect]
     Active Substance: EXEMESTANE
     Indication: BREAST CANCER METASTATIC
     Dosage: 25 MG, QD
     Route: 048
     Dates: start: 20140424, end: 20140804
  9. SIMVASTATIN. [Concomitant]
     Active Substance: SIMVASTATIN
     Indication: HYPERCHOLESTEROLAEMIA
     Dosage: 20 MG, UNK
     Route: 048
  10. ENALAPRIL [Concomitant]
     Active Substance: ENALAPRIL
     Indication: HYPERTENSION
     Dosage: 5 MG, UNK
     Route: 048
  11. MORPHINE [Concomitant]
     Active Substance: MORPHINE
     Indication: PRODUCT USED FOR UNKNOWN INDICATION
     Route: 065

REACTIONS (45)
  - Cardiac failure congestive [Recovered/Resolved]
  - Hernia [Unknown]
  - Fat tissue increased [Unknown]
  - Nausea [Unknown]
  - Diastolic dysfunction [Unknown]
  - Abdominal pain upper [Unknown]
  - Gastritis erosive [Unknown]
  - Metastases to stomach [Not Recovered/Not Resolved]
  - Blood alkaline phosphatase increased [Unknown]
  - Blood pressure increased [Unknown]
  - Stomatitis [Recovered/Resolved]
  - Aortic arteriosclerosis [Unknown]
  - Polyuria [Recovering/Resolving]
  - Lymphoedema [Unknown]
  - Costovertebral angle tenderness [Recovered/Resolved]
  - Ascites [Unknown]
  - Pleural effusion [Unknown]
  - Acute kidney injury [Recovered/Resolved]
  - Abdominal pain [Unknown]
  - Pulmonary oedema [Recovered/Resolved]
  - White blood cell count decreased [Recovered/Resolved]
  - Musculoskeletal disorder [Unknown]
  - Pulmonary valve incompetence [Unknown]
  - Cardiac murmur [Unknown]
  - Gastrointestinal mucosa hyperaemia [Unknown]
  - Pulmonary congestion [Unknown]
  - Bronchopulmonary disease [Unknown]
  - Gastric mucosa erythema [Unknown]
  - Gamma-glutamyltransferase increased [Unknown]
  - General physical health deterioration [Unknown]
  - Tricuspid valve incompetence [Unknown]
  - Urinary tract infection [Recovered/Resolved]
  - Pneumonia [Recovered/Resolved]
  - Toxicity to various agents [Unknown]
  - Chronic gastritis [Unknown]
  - Dehydration [Recovered/Resolved]
  - Miosis [Unknown]
  - Chromaturia [Recovered/Resolved]
  - Cardiomegaly [Unknown]
  - Erosive duodenitis [Unknown]
  - Lung infiltration [Unknown]
  - Hypertensive crisis [Recovered/Resolved]
  - Mitral valve incompetence [Unknown]
  - Mucosal discolouration [Unknown]
  - Infection [Recovered/Resolved]

NARRATIVE: CASE EVENT DATE: 20140606
